FAERS Safety Report 9885430 (Version 1)
Quarter: 2014Q1

REPORT INFORMATION
  Report Type: Spontaneous
  Country: US (occurrence: US)
  Receive Date: 20140210
  Receipt Date: 20140210
  Transmission Date: 20141002
  Serious: Yes (Hospitalization)
  Sender: FDA-Public Use
  Company Number: US-MALLINCKRODT-T201401144

PATIENT
  Age: 13 Year
  Sex: Male

DRUGS (2)
  1. GABLOFEN [Suspect]
     Indication: MUSCLE SPASTICITY
     Dosage: 725 MCG/DAY
     Route: 037
  2. GABLOFEN [Suspect]
     Dosage: 96 MCG/DAY
     Route: 037

REACTIONS (6)
  - Overdose [Recovering/Resolving]
  - Implant site swelling [Recovering/Resolving]
  - Lethargy [Recovering/Resolving]
  - Unresponsive to stimuli [Recovering/Resolving]
  - Respiratory depression [Recovering/Resolving]
  - Drug withdrawal syndrome [Unknown]
